FAERS Safety Report 7448458-8 (Version None)
Quarter: 2011Q2

REPORT INFORMATION
  Report Type: 
  Country: None (occurrence: None)
  Receive Date: 20110429
  Receipt Date: 20100621
  Transmission Date: 20111010
  Serious: No
  Sender: FDA-Public Use
  Company Number: US-ASTRAZENECA-2010SE29277

PATIENT
  Age: 45 Year
  Sex: Female
  Weight: 93.4 kg

DRUGS (1)
  1. NEXIUM [Suspect]
     Indication: GASTROOESOPHAGEAL REFLUX DISEASE
     Route: 048

REACTIONS (4)
  - BREAST PAIN [None]
  - WEIGHT INCREASED [None]
  - DRUG DOSE OMISSION [None]
  - ERUCTATION [None]
